FAERS Safety Report 8930227 (Version 2)
Quarter: 2013Q4

REPORT INFORMATION
  Report Type: Spontaneous
  Country: US (occurrence: US)
  Receive Date: 20121128
  Receipt Date: 20131003
  Transmission Date: 20140711
  Serious: No
  Sender: FDA-Public Use
  Company Number: US-PFIZER INC-2012295219

PATIENT
  Age: 42 Year
  Sex: Female
  Weight: 90.7 kg

DRUGS (6)
  1. ZOLOFT [Suspect]
     Indication: DEPRESSION
     Dosage: 100 MG, 1X/DAY
     Route: 048
     Dates: start: 1994
  2. TOPAMAX [Concomitant]
     Dosage: UNK
  3. DEPAKOTE [Concomitant]
     Dosage: UNK
  4. ULTRAM [Concomitant]
     Dosage: UNK
  5. PROMETHAZINE [Concomitant]
     Dosage: UNK
  6. MAXALT [Concomitant]
     Indication: MIGRAINE
     Dosage: 10 MG, AS NEEDED

REACTIONS (2)
  - Migraine [Unknown]
  - Upper limb fracture [Unknown]
